FAERS Safety Report 7878453-6 (Version None)
Quarter: 2011Q4

REPORT INFORMATION
  Report Type: 
  Country: None (occurrence: None)
  Receive Date: 20111012
  Receipt Date: 20110114
  Transmission Date: 20120403
  Serious: Yes (Other)
  Sender: FDA-Public Use
  Company Number: 2011S1000101

PATIENT
  Age: 14 Year
  Sex: Female

DRUGS (2)
  1. OXYCODONE HCL [Suspect]
     Dosage: ORAL
     Route: 048
     Dates: start: 20070101
  2. ROXICODONE [Suspect]
     Dosage: ORAL
     Route: 048
     Dates: start: 20070101

REACTIONS (2)
  - DEPENDENCE [None]
  - WITHDRAWAL SYNDROME [None]
